FAERS Safety Report 23437474 (Version 3)
Quarter: 2024Q1

REPORT INFORMATION
  Report Type: Report from Study
  Country: US (occurrence: None)
  Receive Date: 20240124
  Receipt Date: 20240201
  Transmission Date: 20240409
  Serious: Yes (Other)
  Sender: FDA-Public Use
  Company Number: 2024A015786

PATIENT
  Sex: Female
  Weight: 63.5 kg

DRUGS (1)
  1. TAGRISSO [Suspect]
     Active Substance: OSIMERTINIB
     Indication: Lung neoplasm malignant
     Route: 048
     Dates: start: 20200117

REACTIONS (13)
  - Central nervous system lesion [Unknown]
  - Somnolence [Unknown]
  - Gait disturbance [Unknown]
  - Asthenia [Unknown]
  - Radiation necrosis [Unknown]
  - Fatigue [Unknown]
  - Drug ineffective [Unknown]
  - Speech disorder [Unknown]
  - Brain oedema [Unknown]
  - Balance disorder [Unknown]
  - Mobility decreased [Unknown]
  - Cognitive disorder [Unknown]
  - Coordination abnormal [Unknown]
